FAERS Safety Report 4930760-2 (Version None)
Quarter: 2006Q1

REPORT INFORMATION
  Report Type: 
  Country: None (occurrence: None)
  Receive Date: 20060227
  Receipt Date: 20060213
  Transmission Date: 20060701
  Serious: Yes (Other)
  Sender: FDA-Public Use
  Company Number: 2006021627

PATIENT
  Sex: Female
  Weight: 74.8435 kg

DRUGS (4)
  1. CELEBREX [Suspect]
     Indication: RHEUMATOID ARTHRITIS
     Dosage: 200 MG (200 MG, 1 IN 1 D)
     Dates: end: 20051201
  2. GLUCOPHAGE [Concomitant]
  3. LISINOPRIL [Concomitant]
  4. ASPIRIN [Concomitant]

REACTIONS (5)
  - ARTHRALGIA [None]
  - CONDITION AGGRAVATED [None]
  - KNEE ARTHROPLASTY [None]
  - MIGRAINE [None]
  - TREATMENT NONCOMPLIANCE [None]
